FAERS Safety Report 7654569-4 (Version None)
Quarter: 2011Q3

REPORT INFORMATION
  Report Type: 
  Country: None (occurrence: None)
  Receive Date: 20110803
  Receipt Date: 20110727
  Transmission Date: 20111222
  Serious: Yes (Other)
  Sender: FDA-Public Use
  Company Number: GXBR2011US03260

PATIENT
  Sex: Male
  Weight: 116.1 kg

DRUGS (15)
  1. WARFARIN SODIUM [Concomitant]
     Dosage: 5 MG, AS DIRECTED
  2. COLACE [Concomitant]
     Indication: FAECES HARD
     Dosage: 100 MG, QD
  3. ENOXAPARIN SODIUM [Suspect]
     Indication: THROMBOSIS PROPHYLAXIS
     Dosage: 100 MG, QD
     Dates: start: 20110721, end: 20110721
  4. METOPROLOL TARTRATE [Concomitant]
     Indication: HYPERTENSION
     Dosage: 50 MG, BID
  5. SIMVASTATIN [Concomitant]
     Indication: BLOOD CHOLESTEROL INCREASED
     Dosage: 80 MG, QD
  6. ACTOS [Concomitant]
     Indication: DIABETES MELLITUS
     Dosage: 30 MG, QD
  7. PRANDIN [Concomitant]
     Indication: DIABETES MELLITUS
     Dosage: 3MG QAM, 1MG AT LUNCH, 2MG AT SUPPER
  8. WARFARIN SODIUM [Concomitant]
     Indication: THROMBOSIS PROPHYLAXIS
     Dosage: 7.5 MG, QD
     Dates: start: 20110723
  9. NITROGLYCERIN [Concomitant]
     Indication: CHEST PAIN
     Dosage: 0.4 MG, PRN
     Route: 060
  10. ENOXAPARIN SODIUM [Suspect]
     Dosage: 100 MG, QD
     Dates: start: 20110723, end: 20110725
  11. MULTIVITAMIN [Concomitant]
     Indication: SUPPLEMENTATION THERAPY
     Dosage: UNK DF, QD
  12. ASPIRIN [Concomitant]
     Indication: ANTICOAGULANT THERAPY
     Dosage: 81 MG, QD
  13. MAGNESIUM OXIDE [Concomitant]
     Dosage: 250 MG, QD
  14. METFORMIN HCL [Concomitant]
     Indication: DIABETES MELLITUS
     Dosage: 1000 MG, BID
  15. LISINOPRIL [Concomitant]
     Indication: HYPERTENSION
     Dosage: 5 MG, QD

REACTIONS (5)
  - DIZZINESS [None]
  - NAUSEA [None]
  - HYPERSENSITIVITY [None]
  - LOSS OF CONSCIOUSNESS [None]
  - DIARRHOEA [None]
